FAERS Safety Report 19704513 (Version 2)
Quarter: 2021Q3

REPORT INFORMATION
  Report Type: Spontaneous
  Country: DE (occurrence: DE)
  Receive Date: 20210816
  Receipt Date: 20210819
  Transmission Date: 20211014
  Serious: Yes (Life-Threatening, Hospitalization, Other)
  Sender: FDA-Public Use
  Company Number: DE-MYLANLABS-2021M1051556

PATIENT
  Age: 73 Year
  Sex: Female

DRUGS (14)
  1. EPIRUBICIN [Suspect]
     Active Substance: EPIRUBICIN
     Indication: PRODUCT USED FOR UNKNOWN INDICATION
     Dosage: LAST ON 11?SEP?2020
  2. CANDESARTAN+HYDROCHLOROTHIAZIDE [Concomitant]
     Active Substance: CANDESARTAN CILEXETIL\HYDROCHLOROTHIAZIDE
     Dosage: 32|25 MG, 0.5?0?0?0, TABLETTEN
     Route: 048
  3. METOPROLOL. [Concomitant]
     Active Substance: METOPROLOL
     Dosage: 100 MG, 0.5?0?0.5?0, TABLETTEN
     Route: 048
  4. LERCANIDIPIN ACTAVIS [Concomitant]
     Active Substance: LERCANIDIPINE
     Dosage: 10 MG, 1?0?0?0, TABLETTEN
     Route: 048
  5. TOLPERISONE [Concomitant]
     Active Substance: TOLPERISONE
     Dosage: 50MG, AS NEEDED, TABLETS
     Route: 048
  6. CYCLOPHOSPHAMID [Suspect]
     Active Substance: CYCLOPHOSPHAMIDE
     Indication: PRODUCT USED FOR UNKNOWN INDICATION
     Dosage: LAST ON 11?SEP?2020
  7. SPIRONOLACTON [Concomitant]
     Active Substance: SPIRONOLACTONE
     Dosage: 50 MG, 1?0?0?0, TABLETTEN
     Route: 048
  8. SITAGLIPTIN [Concomitant]
     Active Substance: SITAGLIPTIN
     Dosage: 50 MG, 1?0?0?0, TABLETTEN
     Route: 048
  9. INSULIN GLULISINE [Concomitant]
     Active Substance: INSULIN GLULISINE
     Dosage: UNK
     Route: 058
  10. ACETYLSALICYLSAEURE [Concomitant]
     Active Substance: ASPIRIN
     Dosage: 100 MG, 1?0?0?0, TABLETTEN
     Route: 048
  11. LEVOTHYROXINENATRIUM TEVA [Concomitant]
     Dosage: 75 ?G, 1?0?0?0, TABLETTEN
     Route: 048
  12. INSULIN GLARGINE [Concomitant]
     Active Substance: INSULIN GLARGINE
     Dosage: UNK
     Route: 058
  13. ATORVASTATIN [Concomitant]
     Active Substance: ATORVASTATIN
     Dosage: 40 MG, 0?0?1?0, TABLETTEN
     Route: 048
  14. PRAMIPEXOL                         /01356401/ [Concomitant]
     Active Substance: PRAMIPEXOLE
     Dosage: 0.35 MG, 0?0?1?0, TABLETTEN
     Route: 048

REACTIONS (7)
  - Fatigue [Unknown]
  - General physical health deterioration [Unknown]
  - Condition aggravated [Unknown]
  - Tachycardia [Unknown]
  - Dyspnoea [Unknown]
  - Acute respiratory failure [Unknown]
  - Wheezing [Unknown]
